FAERS Safety Report 7058943-9 (Version None)
Quarter: 2010Q4

REPORT INFORMATION
  Report Type: 
  Country: None (occurrence: None)
  Receive Date: 20101024
  Receipt Date: 20101012
  Transmission Date: 20110411
  Serious: Yes (Death, Hospitalization)
  Sender: FDA-Public Use
  Company Number: FR-BRISTOL-MYERS SQUIBB COMPANY-15341431

PATIENT
  Age: 66 Year
  Sex: Female

DRUGS (15)
  1. ERBITUX [Suspect]
     Indication: PERITONEAL CARCINOMA METASTATIC
     Route: 042
     Dates: start: 20100713, end: 20100713
  2. CAMPTOSAR [Suspect]
     Indication: PERITONEAL CARCINOMA METASTATIC
     Dosage: SOLN FOR INJ
     Route: 042
     Dates: start: 20100721, end: 20100811
  3. FLUOROURACIL [Suspect]
     Indication: PERITONEAL CARCINOMA METASTATIC
     Dosage: TWO TIMES EVERY 15 DAYS SOLN FOR INJ
     Route: 042
     Dates: start: 20100721, end: 20100811
  4. ELVORINE [Suspect]
     Indication: PERITONEAL CARCINOMA METASTATIC
     Dosage: 11.7857MG SOLN FOR INJ
     Route: 042
     Dates: start: 20100721, end: 20100811
  5. ONDANSETRON [Concomitant]
     Indication: PREMEDICATION
  6. SOLU-MEDROL [Concomitant]
     Indication: PREMEDICATION
  7. POLARAMINE [Concomitant]
     Indication: PREMEDICATION
  8. KERLONE [Concomitant]
  9. LERCANIDIPINE [Concomitant]
  10. NISISCO [Concomitant]
  11. GLUCOPHAGE [Concomitant]
     Route: 048
  12. ZOCOR [Concomitant]
  13. LEVOTHYROXINE SODIUM [Concomitant]
     Dosage: TAB
     Route: 048
  14. KARDEGIC [Concomitant]
  15. FLECAINIDE ACETATE [Concomitant]
     Dosage: LP

REACTIONS (3)
  - DEATH [None]
  - HAEMOLYTIC ANAEMIA [None]
  - THROMBOCYTOPENIA [None]
